FAERS Safety Report 15562425 (Version 1)
Quarter: 2018Q4

REPORT INFORMATION
  Report Type: Spontaneous
  Country: US (occurrence: US)
  Receive Date: 20181029
  Receipt Date: 20181029
  Transmission Date: 20190205
  Serious: Yes (Other)
  Sender: FDA-Public Use
  Company Number: US-TAKEDA-2018TUS031232

PATIENT

DRUGS (30)
  1. PRILOSEC [Suspect]
     Active Substance: OMEPRAZOLE MAGNESIUM
     Indication: DYSPEPSIA
     Dosage: 20 MG, BID
     Route: 048
     Dates: start: 2011
  2. DILTIAZEM. [Concomitant]
     Active Substance: DILTIAZEM
     Indication: HYPERTENSION
     Dosage: UNK
     Dates: start: 2016
  3. FENOFIBRATE. [Concomitant]
     Active Substance: FENOFIBRATE
     Indication: BLOOD CHOLESTEROL INCREASED
     Dosage: UNK
     Dates: start: 2011
  4. METOLAZONE. [Concomitant]
     Active Substance: METOLAZONE
     Indication: HYPERTENSION
     Dosage: UNK
     Dates: start: 2011
  5. VITAMIN D3 [Concomitant]
     Active Substance: CHOLECALCIFEROL
     Indication: BONE DISORDER
     Dosage: UNK
     Dates: start: 2016
  6. CALCIUM ACETATE. [Concomitant]
     Active Substance: CALCIUM ACETATE
     Indication: DIALYSIS
     Dosage: UNK
     Dates: start: 2016
  7. CYCLOSPORINE. [Concomitant]
     Active Substance: CYCLOSPORINE
     Indication: IMMUNOSUPPRESSANT DRUG THERAPY
     Dosage: UNK
     Dates: start: 2012, end: 2015
  8. HYDRALAZINE [Concomitant]
     Active Substance: HYDRALAZINE HYDROCHLORIDE
     Indication: HYPERTENSION
     Dosage: UNK
     Dates: start: 2011
  9. IBUPROFEN. [Concomitant]
     Active Substance: IBUPROFEN
     Indication: ANALGESIC THERAPY
     Dosage: UNK
     Dates: start: 2014
  10. MINOXIDIL. [Concomitant]
     Active Substance: MINOXIDIL
     Indication: HYPERTENSION
     Dosage: UNK
     Dates: start: 2012
  11. RENA-VITE [Concomitant]
     Active Substance: ASCORBIC ACID\BIOTIN\CALCIUM PANTOTHENATE\CYANOCOBALAMIN\FOLIC ACID\NIACINAMIDE\PYRIDOXINE HYDROCHLORIDE\RIBOFLAVIN\THIAMINE MONONITRATE
     Indication: DIALYSIS
     Dosage: UNK
     Dates: start: 2017
  12. VITAMIN D2 [Concomitant]
     Active Substance: ERGOCALCIFEROL
     Indication: HYPOPARATHYROIDISM
     Dosage: UNK
     Dates: start: 2017
  13. CARTIA XT [Concomitant]
     Active Substance: DILTIAZEM HYDROCHLORIDE
     Indication: HYPERTENSION
     Dosage: UNK
     Dates: start: 2005
  14. ASPIRIN                            /00002701/ [Concomitant]
     Active Substance: ASPIRIN
     Indication: CARDIAC DISORDER
     Dosage: UNK
     Dates: start: 2010
  15. LABETALOL [Concomitant]
     Active Substance: LABETALOL\LABETALOL HYDROCHLORIDE
     Indication: HYPERTENSION
     Dosage: UNK
     Dates: start: 2011
  16. NITROSTAT [Concomitant]
     Active Substance: NITROGLYCERIN
     Indication: CHEST PAIN
     Dosage: UNK
     Dates: start: 2013
  17. FERROUS SULFATE. [Concomitant]
     Active Substance: FERROUS SULFATE
     Indication: IRON DEFICIENCY
     Dosage: UNK
     Dates: start: 2015
  18. OMEPRAZOLE. [Suspect]
     Active Substance: OMEPRAZOLE
     Indication: DYSPEPSIA
     Dosage: 20 MG, UNK
     Route: 048
     Dates: start: 2003
  19. BUMETANIDE. [Concomitant]
     Active Substance: BUMETANIDE
     Indication: FLUID RETENTION
     Dosage: UNK
     Dates: start: 2015
  20. HYDROCODONE BITARTRATE AND ACETAMINOPHEN [Concomitant]
     Active Substance: ACETAMINOPHEN\HYDROCODONE BITARTRATE
     Indication: ANALGESIC THERAPY
     Dosage: UNK
     Dates: start: 2014
  21. HYDROCORTISONE. [Concomitant]
     Active Substance: HYDROCORTISONE
     Indication: SWELLING
     Dosage: UNK
     Dates: start: 2014
  22. METHYLPREDNISOLONE. [Concomitant]
     Active Substance: METHYLPREDNISOLONE
     Indication: INFLAMMATION
     Dosage: UNK
     Dates: start: 2013
  23. SODIUM BICARBONATE. [Concomitant]
     Active Substance: SODIUM BICARBONATE
     Indication: DYSPEPSIA
     Dosage: UNK
     Dates: start: 2016
  24. PREVACID [Suspect]
     Active Substance: LANSOPRAZOLE
     Indication: DYSPEPSIA
     Dosage: 30 MG, QD
     Route: 048
     Dates: start: 2001
  25. AMLODIPINE [Concomitant]
     Active Substance: AMLODIPINE BESYLATE
     Indication: HYPERTENSION
     Dosage: UNK
     Dates: start: 2011, end: 2012
  26. BENZONATATE. [Concomitant]
     Active Substance: BENZONATATE
     Indication: COUGH
     Dosage: UNK
     Dates: start: 2016
  27. GENGRAF [Concomitant]
     Active Substance: CYCLOSPORINE
     Indication: IMMUNOSUPPRESSANT DRUG THERAPY
     Dosage: UNK
     Dates: start: 2014
  28. FUROSEMIDE. [Concomitant]
     Active Substance: FUROSEMIDE
     Indication: FLUID RETENTION
     Dosage: UNK
     Dates: start: 2011
  29. MELOXICAM. [Concomitant]
     Active Substance: MELOXICAM
     Indication: ARTHRITIS
     Dosage: UNK
     Dates: start: 2014
  30. PRAVASTATIN SODIUM. [Concomitant]
     Active Substance: PRAVASTATIN SODIUM
     Indication: BLOOD CHOLESTEROL INCREASED
     Dosage: UNK
     Dates: start: 2011

REACTIONS (2)
  - Chronic kidney disease [Not Recovered/Not Resolved]
  - End stage renal disease [Not Recovered/Not Resolved]
